FAERS Safety Report 16805398 (Version 1)
Quarter: 2019Q3

REPORT INFORMATION
  Report Type: Spontaneous
  Country: US (occurrence: US)
  Receive Date: 20190724
  Receipt Date: 20190724
  Transmission Date: 20191005
  Serious: Yes (Life-Threatening, Hospitalization, Disabling, Other)
  Sender: FDA-Public Use
  Company Number: None

PATIENT
  Age: 65 Year
  Sex: Male
  Weight: 195.04 kg

DRUGS (1)
  1. REGADENOSON .05 [Suspect]
     Active Substance: REGADENOSON
     Indication: CARDIAC PHARMACOLOGIC STRESS TEST
     Route: 042
     Dates: start: 20120728

REACTIONS (4)
  - Chronic obstructive pulmonary disease [None]
  - Chest discomfort [None]
  - Dyspnoea [None]
  - Cough [None]

NARRATIVE: CASE EVENT DATE: 20120728
